FAERS Safety Report 6495836-X (Version None)
Quarter: 2009Q4

REPORT INFORMATION
  Report Type: 
  Country: None (occurrence: None)
  Receive Date: 20091214
  Receipt Date: 20090819
  Transmission Date: 20100525
  Serious: No
  Sender: FDA-Public Use
  Company Number: US-BRISTOL-MYERS SQUIBB COMPANY-14746895

PATIENT
  Age: 34 Year
  Sex: Female
  Weight: 88 kg

DRUGS (3)
  1. ABILIFY [Suspect]
     Indication: SCHIZOAFFECTIVE DISORDER
     Dosage: 30MG:2YRS  THEN DECREASED TO 15MG + TO 10MG DAILY.
     Dates: start: 20060101
  2. ABILIFY [Suspect]
     Indication: BIPOLAR DISORDER
     Dosage: 30MG:2YRS  THEN DECREASED TO 15MG + TO 10MG DAILY.
     Dates: start: 20060101
  3. WELLBUTRIN [Concomitant]

REACTIONS (9)
  - ACNE [None]
  - AMNESIA [None]
  - BLOOD CHOLESTEROL INCREASED [None]
  - GAIT DISTURBANCE [None]
  - GLUCOSE TOLERANCE IMPAIRED [None]
  - INCREASED APPETITE [None]
  - LOOSE TOOTH [None]
  - PAIN IN EXTREMITY [None]
  - WEIGHT INCREASED [None]
